FAERS Safety Report 5679014-X (Version None)
Quarter: 2008Q1

REPORT INFORMATION
  Report Type: 
  Country: None (occurrence: None)
  Receive Date: 20080325
  Receipt Date: 20080320
  Transmission Date: 20080703
  Serious: Yes (Hospitalization)
  Sender: FDA-Public Use
  Company Number: B0513775A

PATIENT
  Age: 38 Year
  Sex: Female

DRUGS (2)
  1. KIVEXA [Suspect]
     Indication: HIV INFECTION
     Route: 048
     Dates: start: 20080204, end: 20080228
  2. KALETRA [Concomitant]
     Dates: start: 20071028, end: 20080204

REACTIONS (3)
  - ANAEMIA [None]
  - LEUKOPENIA [None]
  - PYREXIA [None]
